FAERS Safety Report 18688705 (Version 1)
Quarter: 2020Q4

REPORT INFORMATION
  Report Type: Spontaneous
  Country: US (occurrence: US)
  Receive Date: 20201231
  Receipt Date: 20201231
  Transmission Date: 20210114
  Serious: No
  Sender: FDA-Public Use
  Company Number: None

PATIENT
  Age: 70 Year
  Weight: 74.6 kg

DRUGS (11)
  1. LIDOCAINE. [Concomitant]
     Active Substance: LIDOCAINE
  2. LISINOPRIL. [Concomitant]
     Active Substance: LISINOPRIL
  3. CAPECITABINE. [Suspect]
     Active Substance: CAPECITABINE
     Indication: BREAST CANCER
     Route: 048
     Dates: start: 20200615, end: 20201231
  4. DEXAMETHASONE. [Concomitant]
     Active Substance: DEXAMETHASONE
  5. ASPIRIN 81 [Concomitant]
     Active Substance: ASPIRIN
  6. PROCHLORPERAZINE MALEATE. [Concomitant]
     Active Substance: PROCHLORPERAZINE MALEATE
  7. DICLOFENAC SODIUM. [Concomitant]
     Active Substance: DICLOFENAC SODIUM
  8. LETROZOLE. [Concomitant]
     Active Substance: LETROZOLE
  9. MIRALAX [Concomitant]
     Active Substance: POLYETHYLENE GLYCOL 3350
  10. NAPROXEN. [Concomitant]
     Active Substance: NAPROXEN
  11. IBUPROFEN. [Concomitant]
     Active Substance: IBUPROFEN

REACTIONS (1)
  - Disease progression [None]

NARRATIVE: CASE EVENT DATE: 20201231
